FAERS Safety Report 13264228 (Version 1)
Quarter: 2017Q1

REPORT INFORMATION
  Report Type: Spontaneous
  Country: US (occurrence: US)
  Receive Date: 20170223
  Receipt Date: 20170223
  Transmission Date: 20170428
  Serious: No
  Sender: FDA-Public Use
  Company Number: None

PATIENT
  Age: 76 Year
  Sex: Female
  Weight: 70.37 kg

DRUGS (9)
  1. JANUMET [Concomitant]
     Active Substance: METFORMIN HYDROCHLORIDE\SITAGLIPTIN PHOSPHATE
  2. FISH OIL [Concomitant]
     Active Substance: FISH OIL
  3. AMLODIPINE [Concomitant]
     Active Substance: AMLODIPINE BESYLATE
  4. NATUREMADE ADULT GUMMIES [Concomitant]
  5. NOVOLIN 70/30 [Suspect]
     Active Substance: INSULIN HUMAN
     Indication: TYPE 2 DIABETES MELLITUS
     Dosage: 13 MGS TWICE DAILY - AB MEALTIME AM + PM INJECTION
     Dates: start: 20170126, end: 20170206
  6. HUMULIN 70/30 INSULIN [Concomitant]
  7. LOW-DOSE BAYER ASPIRIN [Concomitant]
  8. FUROSEMIDE. [Concomitant]
     Active Substance: FUROSEMIDE
  9. CENTRUM WOMENS MULTI VITAMIN + MULTI MINERAL [Concomitant]

REACTIONS (10)
  - Dyspnoea [None]
  - Fluid retention [None]
  - Muscle tightness [None]
  - Mental impairment [None]
  - Balance disorder [None]
  - Gait disturbance [None]
  - Peripheral swelling [None]
  - Self-medication [None]
  - Dehydration [None]
  - Joint swelling [None]
